FAERS Safety Report 5934116-5 (Version None)
Quarter: 2008Q4

REPORT INFORMATION
  Report Type: 
  Country: None (occurrence: None)
  Receive Date: 20081028
  Receipt Date: 20081028
  Transmission Date: 20090506
  Serious: Yes (Hospitalization)
  Sender: FDA-Public Use
  Company Number: None

PATIENT
  Age: 79 Year
  Sex: Male
  Weight: 107 kg

DRUGS (2)
  1. MOXIFLOXACIN HCL [Suspect]
     Indication: CHRONIC OBSTRUCTIVE PULMONARY DISEASE
     Dosage: 400 MG AT BEDTIME PO
     Route: 048
     Dates: start: 20080623, end: 20080627
  2. MOXIFLOXACIN HCL [Suspect]
     Indication: SINUSITIS
     Dosage: 400 MG AT BEDTIME PO
     Route: 048
     Dates: start: 20080623, end: 20080627

REACTIONS (5)
  - ANAPHYLACTIC REACTION [None]
  - ANGIOEDEMA [None]
  - DRY MOUTH [None]
  - GLOSSITIS [None]
  - STOMATITIS [None]
